FAERS Safety Report 7226784-5 (Version None)
Quarter: 2011Q1

REPORT INFORMATION
  Report Type: 
  Country: None (occurrence: None)
  Receive Date: 20110110
  Receipt Date: 20110110
  Transmission Date: 20110831
  Serious: Yes (Hospitalization)
  Sender: FDA-Public Use
  Company Number: None

PATIENT
  Sex: Female
  Weight: 61 kg

DRUGS (2)
  1. DOXORUBICIN HCL [Suspect]
     Dosage: 100 MG
     Dates: end: 20101222
  2. CYCLOPHOSPHAMIDE [Suspect]
     Dosage: 1000 MG
     Dates: end: 20101222

REACTIONS (10)
  - PYREXIA [None]
  - VOMITING [None]
  - HAEMOGLOBIN DECREASED [None]
  - PLATELET COUNT DECREASED [None]
  - NAUSEA [None]
  - ASTHENIA [None]
  - DIARRHOEA [None]
  - WHITE BLOOD CELL COUNT DECREASED [None]
  - MALAISE [None]
  - NEUTROPHIL COUNT DECREASED [None]
